FAERS Safety Report 17570782 (Version 1)
Quarter: 2020Q1

REPORT INFORMATION
  Report Type: Spontaneous
  Country: ID (occurrence: ID)
  Receive Date: 20200323
  Receipt Date: 20200323
  Transmission Date: 20200409
  Serious: Yes (Other)
  Sender: FDA-Public Use
  Company Number: ID-BAYER-2020-043210

PATIENT
  Age: 60 Year
  Sex: Male

DRUGS (2)
  1. STIVARGA [Suspect]
     Active Substance: REGORAFENIB
     Indication: HEPATOCELLULAR CARCINOMA
     Dosage: DAILY DOSE 80 MG(1X2TABS)
     Dates: start: 20200212
  2. NEXAVAR [Suspect]
     Active Substance: SORAFENIB
     Indication: HEPATOCELLULAR CARCINOMA
     Dosage: 2X200MG
     Route: 048
     Dates: start: 20190801, end: 20200131

REACTIONS (11)
  - White blood cell count increased [Not Recovered/Not Resolved]
  - Alanine aminotransferase increased [Not Recovered/Not Resolved]
  - Pain of skin [Recovered/Resolved]
  - Aspartate aminotransferase increased [Not Recovered/Not Resolved]
  - Blister [Recovered/Resolved]
  - Off label use [None]
  - Palmoplantar keratoderma [Recovered/Resolved]
  - Palmoplantar keratoderma [Recovered/Resolved]
  - Off label use [Not Recovered/Not Resolved]
  - Platelet count increased [Not Recovered/Not Resolved]
  - Blister [Recovered/Resolved]

NARRATIVE: CASE EVENT DATE: 201908
